FAERS Safety Report 16810507 (Version 4)
Quarter: 2019Q4

REPORT INFORMATION
  Report Type: Report from Study
  Country: None (occurrence: CA)
  Receive Date: 20190916
  Receipt Date: 20191025
  Transmission Date: 20200122
  Serious: Yes (Hospitalization, Other)
  Sender: FDA-Public Use
  Company Number: CA-ABBVIE-19K-028-2920934-00

PATIENT
  Age: 46 Year
  Sex: Female

DRUGS (3)
  1. MAVIRET [Suspect]
     Active Substance: GLECAPREVIR\PIBRENTASVIR
     Indication: CHRONIC HEPATITIS C
     Dosage: 100MG/40MG
     Route: 048
     Dates: start: 20190815, end: 20190906
  2. MAVIRET [Suspect]
     Active Substance: GLECAPREVIR\PIBRENTASVIR
     Dosage: 100MG/40MG
     Route: 048
     Dates: start: 2019, end: 20190921
  3. MAVIRET [Suspect]
     Active Substance: GLECAPREVIR\PIBRENTASVIR
     Dosage: 400MG/100MG
     Route: 048
     Dates: start: 2019, end: 2019

REACTIONS (6)
  - Anaemia [Unknown]
  - Seizure [Recovering/Resolving]
  - Dysphagia [Recovering/Resolving]
  - Hepatic encephalopathy [Unknown]
  - Hepatic failure [Unknown]
  - Depressed level of consciousness [Recovering/Resolving]

NARRATIVE: CASE EVENT DATE: 2019
